FAERS Safety Report 19438121 (Version 2)
Quarter: 2021Q3

REPORT INFORMATION
  Report Type: Spontaneous
  Country: US (occurrence: US)
  Receive Date: 20210618
  Receipt Date: 20210714
  Transmission Date: 20211014
  Serious: Yes (Other)
  Sender: FDA-Public Use
  Company Number: US-ALKERMES INC.-ALK-2021-003106

PATIENT
  Sex: Male

DRUGS (2)
  1. VIVITROL [Suspect]
     Active Substance: NALTREXONE
     Indication: ALCOHOLISM
     Dosage: 380 MILLIGRAM, QMO
     Route: 030
  2. SUBOXONE [Concomitant]
     Active Substance: BUPRENORPHINE HYDROCHLORIDE\NALOXONE HYDROCHLORIDE
     Indication: PRODUCT USED FOR UNKNOWN INDICATION
     Dosage: UNK
     Route: 065

REACTIONS (6)
  - Injection site abscess [Recovered/Resolved]
  - Injection site necrosis [Recovered/Resolved]
  - Injection site reaction [Not Recovered/Not Resolved]
  - Injection site scar [Not Recovered/Not Resolved]
  - Product administered at inappropriate site [Recovered/Resolved]
  - Alcoholism [Unknown]

NARRATIVE: CASE EVENT DATE: 2021
